FAERS Safety Report 20127029 (Version 1)
Quarter: 2021Q4

REPORT INFORMATION
  Report Type: Spontaneous
  Country: US (occurrence: None)
  Receive Date: 20211129
  Receipt Date: 20211129
  Transmission Date: 20220303
  Serious: Yes (Hospitalization)
  Sender: FDA-Public Use
  Company Number: None

PATIENT
  Age: 51 Year
  Sex: Female

DRUGS (1)
  1. TACROLIMUS [Suspect]
     Active Substance: TACROLIMUS
     Dosage: FREQUENCY : EVERY 12 HOURS;?
     Route: 048
     Dates: start: 201612

REACTIONS (3)
  - Chills [None]
  - Cellulitis [None]
  - Pyrexia [None]

NARRATIVE: CASE EVENT DATE: 20211123
